FAERS Safety Report 8969264 (Version 1)
Quarter: 2012Q4

REPORT INFORMATION
  Report Type: 
  Country: US (occurrence: US)
  Receive Date: 20121218
  Receipt Date: 20121218
  Transmission Date: 20130627
  Serious: No
  Sender: FDA-Public Use
  Company Number: US-BRISTOL-MYERS SQUIBB COMPANY-16678021

PATIENT
  Age: 67 Year
  Sex: Female
  Weight: 75.28 kg

DRUGS (2)
  1. ABILIFY [Suspect]
     Indication: DEPRESSION
     Dates: start: 2012
  2. LEXAPRO [Concomitant]

REACTIONS (4)
  - Restlessness [Unknown]
  - Tremor [Unknown]
  - Nervousness [Unknown]
  - Decreased interest [Unknown]
